FAERS Safety Report 20850028 (Version 1)
Quarter: 2022Q2

REPORT INFORMATION
  Report Type: Spontaneous
  Country: CA (occurrence: CA)
  Receive Date: 20220519
  Receipt Date: 20220519
  Transmission Date: 20220721
  Serious: Yes (Life-Threatening, Hospitalization, Other)
  Sender: FDA-Public Use
  Company Number: CA-BRISTOL-MYERS SQUIBB COMPANY-2022-038980

PATIENT
  Age: 70 Year
  Sex: Male
  Weight: 115 kg

DRUGS (13)
  1. ELIQUIS [Suspect]
     Active Substance: APIXABAN
     Indication: Atrial fibrillation
     Route: 048
  2. ATORVASTATIN [Concomitant]
     Active Substance: ATORVASTATIN
  3. BETAMETHASONE VALERATE [Concomitant]
     Active Substance: BETAMETHASONE VALERATE
  4. BISOPROLOL [Concomitant]
     Active Substance: BISOPROLOL
  5. ASPIRIN [Concomitant]
     Active Substance: ASPIRIN
     Dosage: DOSAGE FORM: TABLET (DELAYED-RELEASE)
  6. GLICLAZIDE [Concomitant]
     Active Substance: GLICLAZIDE
     Dosage: DOSAGE FORM: TABLET (EXTENDED-RELEASE)
  7. INDAPAMIDE [Concomitant]
     Active Substance: INDAPAMIDE
  8. MOMETASONE FUROATE [Concomitant]
     Active Substance: MOMETASONE FUROATE
  9. NIFEDIPINE [Concomitant]
     Active Substance: NIFEDIPINE
     Dosage: DOSAGE FORM: TABLET (EXTENDED-RELEASE)
  10. PERINDOPRIL [Concomitant]
     Active Substance: PERINDOPRIL
  11. RABEPRAZOLE [Concomitant]
     Active Substance: RABEPRAZOLE
  12. SENNOSIDES [Concomitant]
     Active Substance: SENNOSIDES
  13. SPIRIVA RESPIMAT [Concomitant]
     Active Substance: TIOTROPIUM BROMIDE

REACTIONS (3)
  - Coagulation time shortened [Unknown]
  - Peripheral artery thrombosis [Unknown]
  - Thromboembolectomy [Unknown]
